FAERS Safety Report 5527824-1 (Version None)
Quarter: 2007Q4

REPORT INFORMATION
  Report Type: 
  Country: None (occurrence: None)
  Receive Date: 20071128
  Receipt Date: 20071127
  Transmission Date: 20080405
  Serious: Yes (Other)
  Sender: FDA-Public Use
  Company Number: B0495955A

PATIENT
  Age: 17 Year
  Sex: Female

DRUGS (40)
  1. PAXIL [Suspect]
     Indication: OBSESSIVE-COMPULSIVE DISORDER
     Dosage: 10MG PER DAY
     Route: 048
     Dates: start: 20050818, end: 20050914
  2. PAXIL [Suspect]
     Indication: DEPRESSION
     Dosage: 20MG PER DAY
     Route: 048
     Dates: start: 20050915, end: 20051030
  3. PAXIL [Suspect]
     Dosage: 10MG PER DAY
     Route: 048
     Dates: start: 20051031, end: 20051123
  4. PAXIL [Suspect]
     Dosage: 20MG PER DAY
     Route: 048
     Dates: start: 20051124, end: 20060104
  5. PAXIL [Suspect]
     Dosage: 30MG PER DAY
     Route: 048
     Dates: start: 20060105, end: 20060208
  6. PAXIL [Suspect]
     Dosage: 20MG PER DAY
     Route: 048
     Dates: start: 20060209, end: 20060405
  7. PAXIL [Suspect]
     Dosage: 30MG PER DAY
     Route: 048
     Dates: start: 20060406, end: 20060517
  8. PAXIL [Suspect]
     Dosage: 20MG PER DAY
     Route: 048
     Dates: start: 20060518, end: 20060927
  9. PAXIL [Suspect]
     Dosage: 30MG PER DAY
     Route: 048
     Dates: start: 20060928, end: 20061129
  10. PAXIL [Suspect]
     Dosage: 40MG PER DAY
     Route: 048
     Dates: start: 20061130, end: 20070117
  11. PAXIL [Suspect]
     Dosage: 30MG PER DAY
     Route: 048
     Dates: start: 20070118, end: 20070308
  12. PAXIL [Suspect]
     Dosage: 20MG PER DAY
     Route: 048
     Dates: start: 20070309, end: 20070314
  13. PAXIL [Suspect]
     Dosage: 10MG PER DAY
     Route: 048
     Dates: start: 20070315, end: 20070412
  14. PAXIL [Suspect]
     Dosage: 10MG PER DAY
     Route: 048
     Dates: start: 20070928, end: 20071011
  15. PAXIL [Suspect]
     Dosage: 20MG PER DAY
     Route: 048
     Dates: start: 20071012, end: 20071025
  16. PAXIL [Suspect]
     Dosage: 30MG PER DAY
     Route: 048
     Dates: start: 20071026, end: 20071101
  17. PAXIL [Suspect]
     Dosage: 10MG PER DAY
     Route: 048
     Dates: start: 20071102, end: 20071108
  18. LULLAN [Concomitant]
     Dosage: 4MG PER DAY
     Route: 048
     Dates: start: 20050818, end: 20051030
  19. MYSLEE [Concomitant]
     Dosage: 5MG PER DAY
     Route: 048
     Dates: start: 20050818, end: 20051116
  20. SOLANAX [Concomitant]
     Dosage: .4MG PER DAY
     Route: 048
     Dates: start: 20060209, end: 20060215
  21. LULLAN [Concomitant]
     Dosage: 8MG PER DAY
     Route: 048
     Dates: start: 20051031, end: 20051108
  22. LULLAN [Concomitant]
     Dosage: 12MG PER DAY
     Route: 048
     Dates: start: 20051109, end: 20051116
  23. LULLAN [Concomitant]
     Dosage: 4MG PER DAY
     Route: 048
     Dates: start: 20051117, end: 20051130
  24. LULLAN [Concomitant]
     Dosage: 4MG PER DAY
     Route: 048
     Dates: start: 20071109
  25. MYSLEE [Concomitant]
     Dosage: 10MG PER DAY
     Route: 048
     Dates: start: 20051208, end: 20060208
  26. DOGMATYL [Concomitant]
     Dosage: 100MG PER DAY
     Route: 065
     Dates: start: 20050929, end: 20051005
  27. DEPAS [Concomitant]
     Dosage: .5MG PER DAY
     Route: 065
     Dates: start: 20051117, end: 20051123
  28. LENDORMIN [Concomitant]
     Dosage: .25MG PER DAY
     Route: 048
     Dates: start: 20051124, end: 20051207
  29. SOLANAX [Concomitant]
     Dosage: .4MG PER DAY
     Route: 048
     Dates: start: 20070118, end: 20070412
  30. SOLANAX [Concomitant]
     Dosage: .8MG PER DAY
     Route: 048
     Dates: start: 20070413
  31. SILECE [Concomitant]
     Dosage: 1MG PER DAY
     Route: 065
     Dates: start: 20060209, end: 20060215
  32. SILECE [Concomitant]
     Dosage: 1MG PER DAY
     Route: 065
     Dates: start: 20060309, end: 20060329
  33. NITRAZEPAM [Concomitant]
     Dosage: 10MG PER DAY
     Route: 048
     Dates: start: 20060216, end: 20060329
  34. LORAZEPAM [Concomitant]
     Dosage: .5MG PER DAY
     Route: 048
     Dates: start: 20060216, end: 20060329
  35. LORAZEPAM [Concomitant]
     Dosage: 3MG PER DAY
     Route: 048
     Dates: start: 20060330, end: 20060726
  36. LORAZEPAM [Concomitant]
     Dosage: 1MG PER DAY
     Route: 048
     Dates: start: 20060727, end: 20070103
  37. LEXOTAN [Concomitant]
     Dosage: 2MG PER DAY
     Route: 048
     Dates: start: 20070104, end: 20070314
  38. MEILAX [Concomitant]
     Dosage: 1MG PER DAY
     Route: 048
     Dates: start: 20070413, end: 20070913
  39. ZOLOFT [Concomitant]
     Dosage: 50MG PER DAY
     Route: 048
     Dates: start: 20071102, end: 20071108
  40. ZOLOFT [Concomitant]
     Dosage: 75MG PER DAY
     Route: 048
     Dates: start: 20071109

REACTIONS (11)
  - DECREASED INTEREST [None]
  - DEPRESSED MOOD [None]
  - DEPRESSION [None]
  - DISTURBANCE IN ATTENTION [None]
  - ILL-DEFINED DISORDER [None]
  - LIBIDO DECREASED [None]
  - MOOD SWINGS [None]
  - OVERDOSE [None]
  - SELF INJURIOUS BEHAVIOUR [None]
  - SELF MUTILATION [None]
  - WEIGHT DECREASED [None]
